FAERS Safety Report 6093568-3 (Version None)
Quarter: 2009Q1

REPORT INFORMATION
  Report Type: 
  Country: None (occurrence: None)
  Receive Date: 20090226
  Receipt Date: 20090218
  Transmission Date: 20090719
  Serious: Yes (Hospitalization, Other)
  Sender: FDA-Public Use
  Company Number: US-TEVA-183501USA

PATIENT
  Sex: Male

DRUGS (4)
  1. MERCAPTOPURINE [Suspect]
     Indication: CROHN'S DISEASE
     Dates: start: 19990101
  2. PREDNISONE [Concomitant]
  3. RANITIDINE HYDROCHLORIDE [Concomitant]
  4. ALLERGY MEDICATION (NOS) [Concomitant]

REACTIONS (1)
  - PANCREATITIS [None]
